FAERS Safety Report 18725218 (Version 3)
Quarter: 2021Q1

REPORT INFORMATION
  Report Type: Spontaneous
  Country: US (occurrence: US)
  Receive Date: 20210111
  Receipt Date: 20210305
  Transmission Date: 20210419
  Serious: Yes (Hospitalization, Other)
  Sender: FDA-Public Use
  Company Number: US-CATALYST PHARMACEUTICALS, INC-2020CAT00631

PATIENT
  Age: 36 Year
  Sex: Male
  Weight: 92.97 kg

DRUGS (18)
  1. GABAPENTIN. [Concomitant]
     Active Substance: GABAPENTIN
     Dosage: 600 MG, 3X/DAY
  2. METHOCARBAMOL. [Concomitant]
     Active Substance: METHOCARBAMOL
     Dosage: 1000 MG
  3. PYRIDOSTIGMINE BROMIDE. [Concomitant]
     Active Substance: PYRIDOSTIGMINE BROMIDE
     Dosage: 30 MG, 3X/DAY
  4. BISACODYL. [Concomitant]
     Active Substance: BISACODYL
     Dosage: 10 MG, 1X/DAY
     Route: 054
     Dates: start: 20201231
  5. FIRDAPSE [Suspect]
     Active Substance: AMIFAMPRIDINE PHOSPHATE
     Indication: MYASTHENIC SYNDROME
     Dosage: 20 MG, 4X/DAY
     Route: 048
     Dates: start: 20190201
  6. GABAPENTIN. [Concomitant]
     Active Substance: GABAPENTIN
     Dosage: 300 MG, 3X/DAY
  7. METHADONE HCL [Concomitant]
     Active Substance: METHADONE HYDROCHLORIDE
     Dosage: 185 MG, 1X/DAY
  8. SEROQUEL [Concomitant]
     Active Substance: QUETIAPINE FUMARATE
     Dosage: 200 MG, 1X/DAY AT BEDTIME
  9. METHADONE HCL [Concomitant]
     Active Substance: METHADONE HYDROCHLORIDE
     Dosage: 25 MG, 2X/DAY
  10. POLYETHYLENE GLYCOL [Concomitant]
     Active Substance: POLYETHYLENE GLYCOLS
     Dosage: 17 G IN 8 OUNCES OF LIQUID AND DRINK, 1X/DAY
     Route: 048
     Dates: start: 20201231
  11. METHADONE HCL [Concomitant]
     Active Substance: METHADONE HYDROCHLORIDE
     Dosage: UNK
  12. METHADONE HCL [Concomitant]
     Active Substance: METHADONE HYDROCHLORIDE
     Dosage: 20 MG, 2X/DAY
     Route: 048
     Dates: start: 20201228
  13. METHOCARBAMOL. [Concomitant]
     Active Substance: METHOCARBAMOL
     Dosage: 100 MG, 2X/DAY
  14. METHADONE HCL [Concomitant]
     Active Substance: METHADONE HYDROCHLORIDE
     Dosage: 175 MG, 1X/DAY
  15. SEROQUEL [Concomitant]
     Active Substance: QUETIAPINE FUMARATE
     Dosage: 100 MG, 1X/DAY AT BEDTIME
     Dates: start: 20201228
  16. SEROQUEL [Concomitant]
     Active Substance: QUETIAPINE FUMARATE
     Dosage: 200 MG, 1X/DAY NIGHTLY
     Route: 048
     Dates: start: 20201230
  17. SENNOSIDES. [Concomitant]
     Active Substance: SENNOSIDES
     Dosage: 17.2 MG, 2X/DAY
     Route: 048
  18. BUTALBITAL?ACETAMINOPHEN?CAFFEINE [Concomitant]
     Active Substance: ACETAMINOPHEN\BUTALBITAL\CAFFEINE
     Dosage: 1 TABLET, EVERY 4 HOURS PRN
     Route: 048

REACTIONS (37)
  - Cognitive disorder [Unknown]
  - Back injury [Unknown]
  - Pain [Unknown]
  - Cerebral haematoma [Recovered/Resolved]
  - Agitation [Recovered/Resolved]
  - Blood sodium decreased [Recovered/Resolved]
  - Visual impairment [Recovering/Resolving]
  - Muscular weakness [Not Recovered/Not Resolved]
  - Back pain [Unknown]
  - Acute respiratory failure [Recovered/Resolved]
  - Haemorrhage intracranial [Recovered/Resolved]
  - Balance disorder [Recovering/Resolving]
  - Cerebral haemorrhage [Recovered/Resolved]
  - Skull fracture [Recovered/Resolved]
  - Hypoxia [Recovered/Resolved]
  - Hypercapnia [Recovered/Resolved]
  - Electrocardiogram QT prolonged [Unknown]
  - Thyroid calcification [Not Recovered/Not Resolved]
  - Joint contracture [Not Recovered/Not Resolved]
  - Nausea [Recovered/Resolved]
  - Subarachnoid haemorrhage [Recovered/Resolved]
  - Pancreatic atrophy [Not Recovered/Not Resolved]
  - Mobility decreased [Unknown]
  - Loss of personal independence in daily activities [Unknown]
  - Pain in extremity [Unknown]
  - Coeliac artery stenosis [Not Recovered/Not Resolved]
  - Fall [Recovered/Resolved]
  - Disorientation [Recovered/Resolved]
  - Arthralgia [Unknown]
  - Obesity [Not Recovered/Not Resolved]
  - Craniocerebral injury [Recovering/Resolving]
  - Leukocytosis [Recovered/Resolved]
  - Amnesia [Not Recovered/Not Resolved]
  - Joint injury [Unknown]
  - Bradycardia [Recovered/Resolved]
  - Subdural haematoma [Recovered/Resolved]
  - Limb injury [Unknown]

NARRATIVE: CASE EVENT DATE: 202012
